FAERS Safety Report 25806882 (Version 1)
Quarter: 2025Q3

REPORT INFORMATION
  Report Type: Spontaneous
  Country: US (occurrence: US)
  Receive Date: 20250916
  Receipt Date: 20250916
  Transmission Date: 20251020
  Serious: No
  Sender: BRAEBURN PHARMACEUTICALS
  Company Number: US-BRAEBURN PHARMACEUTICALS-US-BRA-25-000529

PATIENT
  Sex: Female

DRUGS (2)
  1. BRIXADI [Suspect]
     Active Substance: BUPRENORPHINE
     Indication: Product used for unknown indication
     Dosage: 96 MILLIGRAM, MONTHLY
     Route: 065
     Dates: start: 20250515
  2. BRIXADI [Suspect]
     Active Substance: BUPRENORPHINE
     Dosage: 128 MILLIGRAM, MONTHLY
     Route: 065
     Dates: start: 20250612

REACTIONS (2)
  - Injection site bruising [Unknown]
  - Injection site discomfort [Unknown]

NARRATIVE: CASE EVENT DATE: 20250601
